FAERS Safety Report 24361614 (Version 1)
Quarter: 2024Q3

REPORT INFORMATION
  Report Type: Spontaneous
  Country: US (occurrence: None)
  Receive Date: 20240924
  Receipt Date: 20240924
  Transmission Date: 20241017
  Serious: No
  Sender: Public
  Company Number: None

PATIENT
  Sex: Male

DRUGS (1)
  1. ICATIBANT ACETATE [Suspect]
     Active Substance: ICATIBANT ACETATE
     Indication: Complement factor abnormal
     Dosage: 30MG AS NEEDED UNDER THE SKIN
     Route: 058
     Dates: start: 202107

REACTIONS (3)
  - Oral disorder [None]
  - Tongue disorder [None]
  - Gallbladder disorder [None]
